FAERS Safety Report 18626217 (Version 2)
Quarter: 2023Q1

REPORT INFORMATION
  Report Type: Spontaneous
  Country: FR (occurrence: FR)
  Receive Date: 20201217
  Receipt Date: 20230315
  Transmission Date: 20230417
  Serious: Yes (Hospitalization, Other)
  Sender: FDA-Public Use
  Company Number: None

PATIENT
  Age: 47 Year
  Sex: Female

DRUGS (2)
  1. ANAKINRA [Suspect]
     Active Substance: ANAKINRA
     Indication: Muckle-Wells syndrome
     Route: 058
     Dates: start: 20180601
  2. ILARIS [Suspect]
     Active Substance: CANAKINUMAB
     Indication: Muckle-Wells syndrome
     Dosage: 150 MG, POUDRE POUR SOLUTION INJECTABLE
     Route: 058
     Dates: start: 20110101

REACTIONS (1)
  - Gliosarcoma [Not Recovered/Not Resolved]

NARRATIVE: CASE EVENT DATE: 20200822
